FAERS Safety Report 23301449 (Version 1)
Quarter: 2023Q4

REPORT INFORMATION
  Report Type: Report from Study
  Country: US (occurrence: US)
  Receive Date: 20231215
  Receipt Date: 20231215
  Transmission Date: 20240109
  Serious: Yes (Hospitalization, Other)
  Sender: FDA-Public Use
  Company Number: US-ABBVIE-5537736

PATIENT
  Sex: Male

DRUGS (5)
  1. RINVOQ [Suspect]
     Active Substance: UPADACITINIB
     Indication: Proctitis ulcerative
     Dosage: TAKE 1 TABLET BY MOUTH DAILY?LAST ADMIN DATE 2023
     Route: 048
     Dates: start: 202309
  2. HYDREA [Concomitant]
     Active Substance: HYDROXYUREA
     Indication: Product used for unknown indication
  3. PREDNISONE [Suspect]
     Active Substance: PREDNISONE
     Indication: Rash pustular
     Route: 065
  4. FOLIC ACID [Concomitant]
     Active Substance: FOLIC ACID
     Indication: Product used for unknown indication
  5. IRON [Concomitant]
     Active Substance: IRON
     Indication: Product used for unknown indication

REACTIONS (7)
  - Sickle cell anaemia with crisis [Unknown]
  - Pyrexia [Recovered/Resolved]
  - Rash vesicular [Unknown]
  - Therapeutic product effect incomplete [Unknown]
  - Skin irritation [Unknown]
  - Decreased appetite [Unknown]
  - Therapy cessation [Unknown]

NARRATIVE: CASE EVENT DATE: 20230101
